FAERS Safety Report 20969402 (Version 1)
Quarter: 2022Q2

REPORT INFORMATION
  Report Type: Spontaneous
  Country: US (occurrence: None)
  Receive Date: 20220616
  Receipt Date: 20220616
  Transmission Date: 20220720
  Serious: No
  Sender: FDA-Public Use
  Company Number: None

PATIENT
  Sex: Female

DRUGS (5)
  1. VIGABATRIN [Suspect]
     Active Substance: VIGABATRIN
     Indication: Seizure
     Dosage: FREQUENCY : TWICE A DAY;?OTHER ROUTE : G-TUBE;?
     Route: 050
  2. KEPPRA [Concomitant]
     Active Substance: LEVETIRACETAM
  3. TRILEPTAL [Concomitant]
     Active Substance: OXCARBAZEPINE
  4. KLONOPIN [Concomitant]
     Active Substance: CLONAZEPAM
  5. VALPROIC ACID [Concomitant]
     Active Substance: VALPROIC ACID

REACTIONS (1)
  - Gastrointestinal motility disorder [None]
